FAERS Safety Report 26195145 (Version 1)
Quarter: 2025Q4

REPORT INFORMATION
  Report Type: Report from Study
  Country: EU (occurrence: EU)
  Receive Date: 20251224
  Receipt Date: 20251224
  Transmission Date: 20260117
  Serious: Yes (Death)
  Sender: ABBVIE
  Company Number: EU-ABBVIE-6368891

PATIENT
  Age: 82 Year
  Sex: Male

DRUGS (6)
  1. CARBIDOPA\LEVODOPA [Suspect]
     Active Substance: CARBIDOPA\LEVODOPA
     Indication: Parkinson^s disease
     Dosage: MD: 3.5 ML; CRT BY DAY: 5.7 ML/H; CRT AT NIGHT: 4.3 ML/H; ED: 1.0 ML
     Route: 050
     Dates: start: 20150226
  2. CARBIDOPA\LEVODOPA [Suspect]
     Active Substance: CARBIDOPA\LEVODOPA
     Dosage: MD: 3.0 ML; CRT BY DAY: 5.3 ML/H; CRT AT NIGHT: 4.0 ML/H; ED: 1.0 ML
     Route: 050
  3. CLOZAPINE [Concomitant]
     Active Substance: CLOZAPINE
     Indication: Product used for unknown indication
  4. ENTACAPONA [Concomitant]
     Indication: Product used for unknown indication
  5. OPICAPONE [Concomitant]
     Active Substance: OPICAPONE
     Indication: Product used for unknown indication
  6. PRAMIPEXOLE [Concomitant]
     Active Substance: PRAMIPEXOLE
     Indication: Product used for unknown indication

REACTIONS (7)
  - Influenza [Fatal]
  - Hyperkinesia [Unknown]
  - Weight decreased [Unknown]
  - Restlessness [Not Recovered/Not Resolved]
  - Hypophagia [Not Recovered/Not Resolved]
  - Terminal state [Not Recovered/Not Resolved]
  - Fluid intake reduced [Not Recovered/Not Resolved]

NARRATIVE: CASE EVENT DATE: 20250101
